FAERS Safety Report 14664871 (Version 2)
Quarter: 2018Q1

REPORT INFORMATION
  Report Type: Spontaneous
  Country: US (occurrence: US)
  Receive Date: 20180321
  Receipt Date: 20180327
  Transmission Date: 20180509
  Serious: No
  Sender: FDA-Public Use
  Company Number: US-009507513-1803USA007004

PATIENT
  Age: 29 Year
  Sex: Female
  Weight: 87.98 kg

DRUGS (1)
  1. NEXPLANON [Suspect]
     Active Substance: ETONOGESTREL
     Indication: CONTRACEPTION
     Dosage: 1 DF, ONE IMPLANT EVERY 3 YEARS
     Route: 059
     Dates: start: 20180131, end: 20180321

REACTIONS (1)
  - Implant site abscess [Unknown]

NARRATIVE: CASE EVENT DATE: 20180214
